FAERS Safety Report 10020983 (Version 1)
Quarter: 2014Q1

REPORT INFORMATION
  Report Type: Spontaneous
  Country: NO (occurrence: NO)
  Receive Date: 20140319
  Receipt Date: 20140319
  Transmission Date: 20141002
  Serious: Yes (Death)
  Sender: FDA-Public Use
  Company Number: NO-AMGEN-NORSP2014018819

PATIENT
  Age: 55 Year
  Sex: Female

DRUGS (1)
  1. ENBREL [Suspect]
     Indication: PRODUCT USED FOR UNKNOWN INDICATION
     Dosage: UNK, 30 DAY
     Route: 051
     Dates: start: 201401

REACTIONS (3)
  - Multi-organ failure [Fatal]
  - Pneumococcal sepsis [Fatal]
  - Pneumonia [Fatal]
